FAERS Safety Report 9897224 (Version 3)
Quarter: 2014Q2

REPORT INFORMATION
  Report Type: Report from Study
  Country: IT (occurrence: IT)
  Receive Date: 20140214
  Receipt Date: 20140426
  Transmission Date: 20141212
  Serious: Yes (Hospitalization)
  Sender: FDA-Public Use
  Company Number: IT-ROCHE-1344698

PATIENT
  Age: 40 Year
  Sex: Female

DRUGS (5)
  1. BEVACIZUMAB [Suspect]
     Indication: COLORECTAL CANCER
     Route: 050
     Dates: start: 20130819, end: 20131021
  2. CALCIUM LEVOFOLINATE [Concomitant]
     Route: 065
     Dates: start: 20130801, end: 20131008
  3. FLUOROURACIL [Concomitant]
     Route: 065
     Dates: start: 20130801, end: 20131008
  4. IRINOTECAN [Concomitant]
     Route: 065
     Dates: start: 20130801, end: 20131008
  5. MANNITOL [Concomitant]
     Dosage: 18%250CC/DC
     Route: 065
     Dates: start: 20131029, end: 20131113

REACTIONS (5)
  - Vomiting [Recovered/Resolved]
  - Dizziness [Recovered/Resolved]
  - Eye haemorrhage [Recovered/Resolved]
  - Cerebral ischaemia [Recovered/Resolved]
  - Haemoglobin decreased [Recovered/Resolved]
